FAERS Safety Report 6204044-9 (Version None)
Quarter: 2009Q2

REPORT INFORMATION
  Report Type: 
  Country: None (occurrence: None)
  Receive Date: 20090521
  Receipt Date: 20090508
  Transmission Date: 20091009
  Serious: Yes (Hospitalization)
  Sender: FDA-Public Use
  Company Number: TRP_06014_2008

PATIENT
  Sex: Female
  Weight: 8.5 kg

DRUGS (3)
  1. RIBASPHERE [Suspect]
     Indication: DRUG USE FOR UNKNOWN INDICATION
     Dosage: (1200 MG/DAY INTRA-UTERINE)
     Route: 015
     Dates: start: 20080501, end: 20080620
  2. PEGASYS [Suspect]
     Indication: DRUG USE FOR UNKNOWN INDICATION
     Dosage: (180 UG 1X/WEEK INTRA-UTERINE)
     Route: 015
     Dates: start: 20080501
  3. METHADONE HCL [Suspect]
     Indication: DRUG DEPENDENCE
     Dosage: (80 MG/DAY) INTRA-UTERINE
     Route: 015

REACTIONS (5)
  - BLOOD BILIRUBIN INCREASED [None]
  - MATERNAL DRUGS AFFECTING FOETUS [None]
  - NEONATAL RESPIRATORY DISTRESS SYNDROME [None]
  - PATERNAL DRUGS AFFECTING FOETUS [None]
  - PREMATURE BABY [None]
